FAERS Safety Report 12808261 (Version 1)
Quarter: 2016Q4

REPORT INFORMATION
  Report Type: Spontaneous
  Country: CN (occurrence: CN)
  Receive Date: 20161004
  Receipt Date: 20161004
  Transmission Date: 20170207
  Serious: Yes (Hospitalization)
  Sender: FDA-Public Use
  Company Number: CN-HQ SPECIALTY-CN-2016INT000901

PATIENT
  Age: 69 Year
  Sex: Female

DRUGS (4)
  1. CISPLATIN. [Suspect]
     Active Substance: CISPLATIN
     Indication: ADENOCARCINOMA
  2. MITOMYCIN. [Suspect]
     Active Substance: MITOMYCIN
     Indication: MALIGNANT PERITONEAL NEOPLASM
     Dosage: 30 MG, SINGLE
     Route: 033
  3. MITOMYCIN. [Suspect]
     Active Substance: MITOMYCIN
     Indication: ADENOCARCINOMA
  4. CISPLATIN. [Suspect]
     Active Substance: CISPLATIN
     Indication: MALIGNANT PERITONEAL NEOPLASM
     Dosage: 120 MG, SINGLE
     Route: 033

REACTIONS (3)
  - Pneumonia [Recovered/Resolved]
  - Sepsis [Recovered/Resolved]
  - Staphylococcal infection [Recovered/Resolved]
